FAERS Safety Report 21176058 (Version 1)
Quarter: 2022Q3

REPORT INFORMATION
  Report Type: Spontaneous
  Country: US (occurrence: US)
  Receive Date: 20220805
  Receipt Date: 20220805
  Transmission Date: 20221026
  Serious: No
  Sender: FDA-Public Use
  Company Number: US-JNJFOC-20220757890

PATIENT
  Sex: Male

DRUGS (1)
  1. RISPERDAL [Suspect]
     Active Substance: RISPERIDONE
     Indication: Affective disorder
     Dosage: RISPERIDONE 1 MG TABLET 11/2 TABLET  AT NIGHT.
     Route: 048

REACTIONS (2)
  - Hormone level abnormal [Unknown]
  - Off label use [Unknown]
